FAERS Safety Report 10230939 (Version 2)
Quarter: 2014Q3

REPORT INFORMATION
  Report Type: Report from Study
  Country: JP (occurrence: JP)
  Receive Date: 20140611
  Receipt Date: 20140709
  Transmission Date: 20150326
  Serious: Yes (Life-Threatening, Hospitalization)
  Sender: FDA-Public Use
  Company Number: JP-ACTELION-A-CH2014-100118

PATIENT
  Age: 69 Year
  Sex: Female
  Weight: 47.9 kg

DRUGS (17)
  1. TRACLEER [Suspect]
     Active Substance: BOSENTAN\BOSENTAN MONOHYDRATE
     Dosage: 93.75 MG, BID
     Route: 048
     Dates: start: 20110530, end: 20120212
  2. AZATHIOPRINE. [Suspect]
     Active Substance: AZATHIOPRINE
     Indication: SJOGREN^S SYNDROME
     Dosage: 75 MG, UNK
     Route: 048
     Dates: start: 20120111
  3. PREDNISOLONE. [Concomitant]
     Active Substance: PREDNISOLONE
  4. OMEPRAZOLE. [Concomitant]
     Active Substance: OMEPRAZOLE
  5. TRACLEER [Suspect]
     Active Substance: BOSENTAN\BOSENTAN MONOHYDRATE
     Dosage: 31.25 MG, BID
     Route: 048
     Dates: start: 20100225, end: 20100302
  6. BERAPROST [Concomitant]
     Active Substance: BERAPROST
  7. POTASSIUM [Concomitant]
     Active Substance: POTASSIUM
  8. METHYLPREDNISOLONE [Suspect]
     Active Substance: METHYLPREDNISOLONE
     Indication: SJOGREN^S SYNDROME
     Dosage: 500 MG, UNK
     Route: 042
     Dates: start: 20100909, end: 20100911
  9. OXYGEN. [Concomitant]
     Active Substance: OXYGEN
  10. SULFAMETHOXAZOL W/TRIMETOPRIM [Concomitant]
  11. TRACLEER [Suspect]
     Active Substance: BOSENTAN\BOSENTAN MONOHYDRATE
     Indication: PULMONARY ARTERIAL HYPERTENSION
     Dosage: 62.5 MG, BID
     Route: 048
     Dates: start: 20100303, end: 20110529
  12. TRACLEER [Suspect]
     Active Substance: BOSENTAN\BOSENTAN MONOHYDRATE
     Dosage: 31.25 MG, QD
     Route: 048
     Dates: start: 20100224, end: 20100224
  13. PIMOBENDAN [Concomitant]
     Active Substance: PIMOBENDAN
  14. SILDENAFIL [Concomitant]
     Active Substance: SILDENAFIL
  15. FUROSEMIDE. [Concomitant]
     Active Substance: FUROSEMIDE
  16. SPIRONOLACTONE. [Concomitant]
     Active Substance: SPIRONOLACTONE
  17. ALENDRONATE [Concomitant]
     Active Substance: ALENDRONATE SODIUM

REACTIONS (11)
  - Hepatic function abnormal [Recovering/Resolving]
  - Diabetes mellitus [Recovering/Resolving]
  - Hypothyroidism [Recovering/Resolving]
  - Cardiac failure [Not Recovered/Not Resolved]
  - Alanine aminotransferase increased [Recovering/Resolving]
  - Pleurisy [Recovering/Resolving]
  - Interstitial lung disease [Recovering/Resolving]
  - Gamma-glutamyltransferase increased [Recovering/Resolving]
  - Blood pressure decreased [Recovered/Resolved]
  - Aspartate aminotransferase increased [Recovering/Resolving]
  - Anaemia [Not Recovered/Not Resolved]

NARRATIVE: CASE EVENT DATE: 20100305
